FAERS Safety Report 4551946-5 (Version None)
Quarter: 2005Q1

REPORT INFORMATION
  Report Type: 
  Country: None (occurrence: None)
  Receive Date: 20050113
  Receipt Date: 20050107
  Transmission Date: 20050727
  Serious: Yes (Other)
  Sender: FDA-Public Use
  Company Number: 003886

PATIENT
  Age: 55 Year
  Sex: Female

DRUGS (4)
  1. MEDROXYPROGESTERONE ACETATE [Suspect]
     Dates: end: 19990101
  2. PREMARIN [Suspect]
     Dates: start: 19870101, end: 19990101
  3. PROVERA [Suspect]
     Dates: end: 19990101
  4. PREMPRO [Suspect]
     Dates: start: 19990601, end: 20020701

REACTIONS (1)
  - BREAST CANCER FEMALE [None]
